FAERS Safety Report 5392190-1 (Version None)
Quarter: 2007Q3

REPORT INFORMATION
  Report Type: 
  Country: None (occurrence: None)
  Receive Date: 20070717
  Receipt Date: 20070717
  Transmission Date: 20080115
  Serious: Yes (Other)
  Sender: FDA-Public Use
  Company Number: None

PATIENT
  Age: 58 Year
  Sex: Female
  Weight: 56.6996 kg

DRUGS (1)
  1. TORISEL [Suspect]
     Indication: RENAL CELL CARCINOMA STAGE UNSPECIFIED
     Dosage: 25 MG 1X IV DRIP
     Route: 041
     Dates: start: 20070713, end: 20070713

REACTIONS (4)
  - ABASIA [None]
  - ASTHENIA [None]
  - INFUSION RELATED REACTION [None]
  - LIP SWELLING [None]
